FAERS Safety Report 21179057 (Version 1)
Quarter: 2022Q3

REPORT INFORMATION
  Report Type: Spontaneous
  Country: None (occurrence: DE)
  Receive Date: 20220805
  Receipt Date: 20220805
  Transmission Date: 20221027
  Serious: Yes (Other)
  Sender: FDA-Public Use
  Company Number: DE-HILL DERMACEUTICALS, INC.-2131553

PATIENT
  Age: 68 Year
  Sex: Male

DRUGS (8)
  1. TOLAK [Suspect]
     Active Substance: FLUOROURACIL
     Dates: start: 20201214
  2. IRINOTECAN [Suspect]
     Active Substance: IRINOTECAN
     Dates: start: 20201214
  3. OXALIPLATIN [Suspect]
     Active Substance: OXALIPLATIN
     Dates: start: 20201214
  4. LEUCOVORIN [Suspect]
     Active Substance: LEUCOVORIN
     Dates: start: 20201214
  5. Metamizol, oral drops, Need, drops with unknown route, dose and indica [Concomitant]
  6. Metoprolol, received at the dose of 47.5 mg, 2-0-1-0/daily with unknow [Concomitant]
  7. Apixaban , received at the dose of 5 mg, 1-0-1-0/ daily with unknown r [Concomitant]
  8. Simvastatin, received at the dose of 20 mg, 0-0-1-0/daily with unknown [Concomitant]

REACTIONS (7)
  - Abdominal pain [Unknown]
  - Diarrhoea [Unknown]
  - Vomiting [Unknown]
  - Neutropenia [Unknown]
  - Cholangitis [Unknown]
  - Nausea [Unknown]
  - Abdominal pain upper [Unknown]

NARRATIVE: CASE EVENT DATE: 20201201
